FAERS Safety Report 6210375-9 (Version None)
Quarter: 2009Q2

REPORT INFORMATION
  Report Type: 
  Country: None (occurrence: None)
  Receive Date: 20090601
  Receipt Date: 20090521
  Transmission Date: 20091009
  Serious: Yes (Death, Hospitalization, Other)
  Sender: FDA-Public Use
  Company Number: US-PFIZER INC-2007054768

PATIENT
  Sex: Female
  Weight: 38 kg

DRUGS (9)
  1. SUNITINIB MALATE [Suspect]
     Indication: BREAST CANCER
     Dosage: 37.5 MG, 1X/DAY
     Route: 048
     Dates: start: 20070423, end: 20070702
  2. *PACLITAXEL [Suspect]
     Indication: BREAST CANCER
     Dosage: 77 MG, EVERY 28 DAYS
     Route: 042
     Dates: start: 20070423, end: 20070626
  3. DETROL LA [Concomitant]
     Dosage: 20 MG, 1X/DAY
     Route: 048
     Dates: start: 20070323, end: 20070705
  4. HYDROCODONE BITARTRATE [Concomitant]
     Indication: PAIN
     Dosage: 5MG/500MG,Q 4-6 HRS PRN
     Route: 048
     Dates: start: 19960501, end: 20070703
  5. ATENOLOL [Concomitant]
     Dosage: 25 MG, 1X/DAY
     Route: 048
     Dates: start: 20040501, end: 20070702
  6. OYSTER SHELL CALCIUM [Concomitant]
     Dosage: 1 TAB, DAILY
     Route: 048
     Dates: start: 20060101, end: 20070702
  7. COLACE [Concomitant]
     Indication: CONSTIPATION
     Dosage: 1-2 CAPS,QD
     Route: 048
     Dates: start: 20070619, end: 20070702
  8. SENNA-GEN [Concomitant]
     Indication: CONSTIPATION
     Dosage: 1-2 TABS,Q DAY TID
     Route: 048
     Dates: start: 20070619
  9. TAMOXIFEN CITRATE [Concomitant]
     Dosage: 10 MG, 2X/DAY
     Route: 048

REACTIONS (6)
  - DEHYDRATION [None]
  - DIARRHOEA [None]
  - FAILURE TO THRIVE [None]
  - NAUSEA [None]
  - NEUTROPENIA [None]
  - URINARY TRACT INFECTION [None]
